FAERS Safety Report 7774679-0 (Version None)
Quarter: 2011Q3

REPORT INFORMATION
  Report Type: 
  Country: None (occurrence: None)
  Receive Date: 20110923
  Receipt Date: 20110913
  Transmission Date: 20111222
  Serious: Yes (Hospitalization)
  Sender: FDA-Public Use
  Company Number: GB-SANOFI-AVENTIS-2011SA062034

PATIENT
  Sex: Male

DRUGS (2)
  1. CLOPIDOGREL BISULFATE [Suspect]
     Indication: ANTIPLATELET THERAPY
     Route: 065
  2. ASPIRIN [Concomitant]
     Indication: ANTIPLATELET THERAPY

REACTIONS (2)
  - THROMBOSIS [None]
  - CORONARY ARTERY OCCLUSION [None]
